FAERS Safety Report 6983932-X (Version None)
Quarter: 2010Q3

REPORT INFORMATION
  Report Type: 
  Country: None (occurrence: None)
  Receive Date: 20100914
  Receipt Date: 20090519
  Transmission Date: 20110219
  Serious: Yes (Hospitalization)
  Sender: FDA-Public Use
  Company Number: US-WYE-H09092809

PATIENT
  Sex: Female
  Weight: 46.4 kg

DRUGS (20)
  1. TYGACIL [Suspect]
     Indication: SEPSIS
     Route: 042
     Dates: start: 20081122, end: 20081216
  2. VANCOMYCIN [Concomitant]
     Dosage: 250 MG/5 ML EVERY 6 HOURS
     Route: 050
  3. HEPARIN SODIUM [Concomitant]
     Route: 058
  4. CARVEDILOL [Concomitant]
     Route: 048
  5. CAPTOPRIL [Concomitant]
  6. LANSOPRAZOLE [Concomitant]
     Route: 050
  7. INSULIN GLARGINE [Concomitant]
     Dosage: 5 UNIT EVERY 1 DAY
  8. INSULIN ASPART [Concomitant]
     Dosage: SLIDING SCALE
  9. ALPRAZOLAM [Concomitant]
     Route: 050
  10. MIRTAZAPINE [Concomitant]
     Route: 050
  11. SERTRALINE HYDROCHLORIDE [Concomitant]
     Route: 050
  12. SANTYL [Concomitant]
     Dosage: OINTMENT EVERY 12 HOURS
  13. EUCERIN CREME [Concomitant]
     Dosage: EVERY 12 HOURS
  14. ASCORBIC ACID [Concomitant]
     Route: 050
  15. NYSTATIN [Concomitant]
     Dosage: POWDER THREE TIMES A DAY
  16. ZINC SULFATE [Concomitant]
     Route: 050
  17. CALCIUM CARBONATE [Concomitant]
     Route: 050
  18. FUROSEMIDE [Concomitant]
     Route: 042
  19. SULFAMETHOXAZOLE AND TRIMETHOPRIM [Concomitant]
     Route: 048
  20. CEFTAZIDIME [Concomitant]
     Route: 042

REACTIONS (1)
  - PANCREATITIS [None]
